FAERS Safety Report 13113240 (Version 1)
Quarter: 2017Q1

REPORT INFORMATION
  Report Type: Spontaneous
  Country: US (occurrence: US)
  Receive Date: 20170113
  Receipt Date: 20170113
  Transmission Date: 20170428
  Serious: No
  Sender: FDA-Public Use
  Company Number: US-GLAXOSMITHKLINE-US2017GSK001727

PATIENT
  Sex: Female
  Weight: 90.7 kg

DRUGS (17)
  1. CLINDAMYCIN CAPSULE [Concomitant]
     Indication: SINUSITIS
     Dosage: 300 MG, TID
     Dates: start: 20160914, end: 20160920
  2. METOPROLOL TARTRATE. [Concomitant]
     Active Substance: METOPROLOL TARTRATE
  3. LEVOTHYROXINE. [Concomitant]
     Active Substance: LEVOTHYROXINE
  4. VERAPAMIL [Concomitant]
     Active Substance: VERAPAMIL HYDROCHLORIDE
  5. PREDNISONE. [Concomitant]
     Active Substance: PREDNISONE
  6. TRAMADOL. [Concomitant]
     Active Substance: TRAMADOL
  7. ASPIRIN. [Concomitant]
     Active Substance: ASPIRIN
  8. KLOR-CON [Concomitant]
     Active Substance: POTASSIUM CHLORIDE
  9. VENTOLIN HFA [Suspect]
     Active Substance: ALBUTEROL SULFATE
     Indication: WHEEZING
     Dosage: 2 PUFF(S), PRN
     Dates: start: 201512
  10. LORAZEPAM. [Concomitant]
     Active Substance: LORAZEPAM
  11. PRAVASTATIN SODIUM. [Concomitant]
     Active Substance: PRAVASTATIN SODIUM
  12. METHOTREXATE. [Concomitant]
     Active Substance: METHOTREXATE
  13. XELJANZ TABLET [Concomitant]
     Indication: RHEUMATOID ARTHRITIS
     Dosage: 11 MG, QD
     Route: 048
     Dates: start: 20160811
  14. ENBREL [Concomitant]
     Active Substance: ETANERCEPT
  15. OXYBUTYNIN [Concomitant]
     Active Substance: OXYBUTYNIN
  16. FUROSEMIDE. [Concomitant]
     Active Substance: FUROSEMIDE
  17. GAS-X [Concomitant]
     Active Substance: DIMETHICONE

REACTIONS (1)
  - Nervousness [Unknown]
